FAERS Safety Report 9925156 (Version 1)
Quarter: 2014Q1

REPORT INFORMATION
  Report Type: Spontaneous
  Country: US (occurrence: None)
  Receive Date: 20140225
  Receipt Date: 20140225
  Transmission Date: 20141002
  Serious: Yes (Hospitalization, Disabling)
  Sender: FDA-Public Use
  Company Number: None

PATIENT
  Age: 63 Year
  Sex: Male
  Weight: 90.72 kg

DRUGS (1)
  1. VESICARE [Suspect]

REACTIONS (11)
  - Dry mouth [None]
  - Dry eye [None]
  - Dry skin [None]
  - Thirst [None]
  - Urine output decreased [None]
  - Lip dry [None]
  - Vision blurred [None]
  - Rash [None]
  - Blood pressure increased [None]
  - Skin lesion [None]
  - Fibroma [None]
